FAERS Safety Report 15833433 (Version 1)
Quarter: 2019Q1

REPORT INFORMATION
  Report Type: Spontaneous
  Country: PL (occurrence: PL)
  Receive Date: 20190116
  Receipt Date: 20190116
  Transmission Date: 20190417
  Serious: Yes (Life-Threatening)
  Sender: FDA-Public Use
  Company Number: PL-MYLANLABS-2019M1003450

PATIENT
  Age: 6 Year
  Sex: Male
  Weight: 39 kg

DRUGS (1)
  1. KLACID (CLARITHROMYCIN) [Suspect]
     Active Substance: CLARITHROMYCIN
     Indication: PNEUMONIA VIRAL
     Dosage: 300 MILLIGRAM, BID
     Route: 042
     Dates: start: 20171108, end: 20171111

REACTIONS (3)
  - Injection site erythema [Recovered/Resolved]
  - Injection site oedema [Recovered/Resolved]
  - Injection site thrombosis [Recovered/Resolved]

NARRATIVE: CASE EVENT DATE: 20171112
